FAERS Safety Report 15795536 (Version 2)
Quarter: 2019Q1

REPORT INFORMATION
  Report Type: Report from Study
  Country: US (occurrence: US)
  Receive Date: 20190107
  Receipt Date: 20190118
  Transmission Date: 20190417
  Serious: No
  Sender: FDA-Public Use
  Company Number: US-BRISTOL-MYERS SQUIBB COMPANY-BMS-2018-123006

PATIENT
  Age: 66 Year
  Sex: Male

DRUGS (2)
  1. CABIRALIZUMAB [Suspect]
     Active Substance: CABIRALIZUMAB
     Indication: RENAL CELL CARCINOMA
     Dosage: 336 MG, Q2WK
     Route: 042
     Dates: start: 20170124
  2. NIVOLUMAB [Suspect]
     Active Substance: NIVOLUMAB
     Indication: RENAL CELL CARCINOMA
     Dosage: 252 MG, Q2WK
     Route: 042
     Dates: start: 20170124

REACTIONS (2)
  - Scleritis [Unknown]
  - Iridocyclitis [Unknown]

NARRATIVE: CASE EVENT DATE: 201703
